FAERS Safety Report 4575676-9 (Version None)
Quarter: 2005Q1

REPORT INFORMATION
  Report Type: 
  Country: None (occurrence: None)
  Receive Date: 20050128
  Receipt Date: 20050128
  Transmission Date: 20050727
  Serious: Yes (Hospitalization)
  Sender: FDA-Public Use
  Company Number: None

PATIENT
  Age: 61 Year
  Sex: Female
  Weight: 108 kg

DRUGS (2)
  1. TAXOTERE [Suspect]
     Indication: DISEASE RECURRENCE
     Dosage: 2.9 MG/M2 CONTINUOUS IV
     Route: 042
     Dates: start: 20040513, end: 20040601
  2. TAXOTERE [Suspect]
     Indication: OVARIAN CANCER
     Dosage: 2.9 MG/M2 CONTINUOUS IV
     Route: 042
     Dates: start: 20040513, end: 20040601

REACTIONS (8)
  - BLOOD CULTURE POSITIVE [None]
  - CONDITION AGGRAVATED [None]
  - IMPLANT SITE INFECTION [None]
  - NAUSEA [None]
  - NECK MASS [None]
  - STAPHYLOCOCCAL INFECTION [None]
  - URINARY TRACT INFECTION [None]
  - VOMITING [None]
